FAERS Safety Report 6867237-3 (Version None)
Quarter: 2010Q3

REPORT INFORMATION
  Report Type: 
  Country: None (occurrence: None)
  Receive Date: 20100722
  Receipt Date: 20100722
  Transmission Date: 20110219
  Serious: Yes (Life-Threatening, Other)
  Sender: FDA-Public Use
  Company Number: None

PATIENT
  Sex: Female
  Weight: 165.5629 kg

DRUGS (1)
  1. SAVELLA [Suspect]
     Dosage: 12.5 X'S 2 DAILY TWICE DAILY ORAL UP TO 100 MGS.DAILY
     Route: 048
     Dates: start: 20100611, end: 20100630

REACTIONS (14)
  - ABASIA [None]
  - ABDOMINAL PAIN UPPER [None]
  - ARTHRALGIA [None]
  - ASTHENIA [None]
  - CONDITION AGGRAVATED [None]
  - DECREASED APPETITE [None]
  - DEPRESSION [None]
  - GENERALISED OEDEMA [None]
  - IMPAIRED WORK ABILITY [None]
  - MUSCULOSKELETAL PAIN [None]
  - MYALGIA [None]
  - NAUSEA [None]
  - OEDEMA PERIPHERAL [None]
  - PAIN [None]
